FAERS Safety Report 7660328-9 (Version None)
Quarter: 2011Q3

REPORT INFORMATION
  Report Type: 
  Country: None (occurrence: None)
  Receive Date: 20110805
  Receipt Date: 20110726
  Transmission Date: 20111222
  Serious: Yes (Hospitalization)
  Sender: FDA-Public Use
  Company Number: US-ELI_LILLY_AND_COMPANY-US201107007411

PATIENT
  Age: 68 Year
  Sex: Male

DRUGS (2)
  1. METFORMIN HCL [Concomitant]
     Dosage: 1000 DF, BID
  2. HUMULIN 70/30 [Suspect]
     Indication: DIABETES MELLITUS
     Dosage: 30 U, BID
     Dates: start: 20090101

REACTIONS (5)
  - CHEST PAIN [None]
  - PAIN IN JAW [None]
  - DRUG DOSE OMISSION [None]
  - BLOOD GLUCOSE INCREASED [None]
  - CORONARY ARTERY OCCLUSION [None]
